FAERS Safety Report 18376265 (Version 1)
Quarter: 2020Q4

REPORT INFORMATION
  Report Type: Report from Study
  Country: GT (occurrence: GT)
  Receive Date: 20201013
  Receipt Date: 20201013
  Transmission Date: 20210114
  Serious: Yes (Other)
  Sender: FDA-Public Use
  Company Number: NVSC2020GT271615

PATIENT
  Age: 63 Year
  Sex: Female

DRUGS (1)
  1. EXFORGE [Suspect]
     Active Substance: AMLODIPINE BESYLATE\VALSARTAN
     Indication: HYPERTENSION
     Dosage: 5/320 MG (STARTED 3 MONTHS AGO)
     Route: 065

REACTIONS (3)
  - Coordination abnormal [Unknown]
  - Communication disorder [Unknown]
  - Cerebrovascular accident [Unknown]
